FAERS Safety Report 7718080-4 (Version None)
Quarter: 2011Q3

REPORT INFORMATION
  Report Type: 
  Country: None (occurrence: None)
  Receive Date: 20110830
  Receipt Date: 20110825
  Transmission Date: 20111222
  Serious: Yes (Other)
  Sender: FDA-Public Use
  Company Number: CN-PFIZER INC-2011197409

PATIENT
  Age: 78 Year
  Sex: Male

DRUGS (6)
  1. WARFARIN [Concomitant]
     Indication: ANTICOAGULANT THERAPY
  2. ATORVASTATIN CALCIUM [Suspect]
     Dosage: ONE TABLET
     Route: 048
  3. GLIBENCLAMIDE [Concomitant]
     Indication: HYPERGLYCAEMIA
     Route: 048
  4. BETALOC [Concomitant]
  5. METFORMIN [Concomitant]
     Indication: HYPERGLYCAEMIA
     Route: 048
  6. NIMODIPINE [Concomitant]

REACTIONS (1)
  - THROMBOCYTOPENIC PURPURA [None]
